FAERS Safety Report 4999835-6 (Version None)
Quarter: 2006Q2

REPORT INFORMATION
  Report Type: 
  Country: None (occurrence: None)
  Receive Date: 20060511
  Receipt Date: 20060509
  Transmission Date: 20061013
  Serious: Yes (Other)
  Sender: FDA-Public Use
  Company Number: US-JNJFOC-20060502118

PATIENT
  Age: 42 Year
  Sex: Female
  Weight: 111.13 kg

DRUGS (12)
  1. LEVAQUIN [Suspect]
     Route: 048
  2. LEVAQUIN [Suspect]
     Indication: URINARY TRACT INFECTION
     Route: 048
  3. BETASERON [Concomitant]
  4. BETASERON [Concomitant]
  5. BETASERON [Concomitant]
     Indication: MULTIPLE SCLEROSIS
  6. DILANTIN [Concomitant]
  7. CADUET [Concomitant]
  8. CADUET [Concomitant]
     Indication: BLOOD PRESSURE
  9. LOZOL [Concomitant]
     Indication: DIURETIC THERAPY
  10. BENADRYL [Concomitant]
  11. SEPTRA [Concomitant]
  12. SEPTRA [Concomitant]

REACTIONS (6)
  - AGEUSIA [None]
  - DIZZINESS [None]
  - DRY MOUTH [None]
  - DYSPEPSIA [None]
  - NAUSEA [None]
  - VOMITING [None]
